FAERS Safety Report 25868653 (Version 1)
Quarter: 2025Q4

REPORT INFORMATION
  Report Type: Spontaneous
  Country: US (occurrence: US)
  Receive Date: 20251001
  Receipt Date: 20251001
  Transmission Date: 20260117
  Serious: Yes (Hospitalization)
  Sender: RECKITT BENCKISER
  Company Number: US-INDIVIOR US-INDV-149258-2024

PATIENT
  Sex: Male

DRUGS (9)
  1. SUBOXONE [Suspect]
     Active Substance: BUPRENORPHINE HYDROCHLORIDE\NALOXONE HYDROCHLORIDE
     Indication: Drug use disorder
     Dosage: 8 MILLIGRAM
     Route: 065
     Dates: start: 200809
  2. SUBOXONE [Suspect]
     Active Substance: BUPRENORPHINE HYDROCHLORIDE\NALOXONE HYDROCHLORIDE
     Dosage: 8 MILLIGRAM, UNKNOWN
     Route: 065
     Dates: start: 201309
  3. SUBOXONE [Suspect]
     Active Substance: BUPRENORPHINE HYDROCHLORIDE\NALOXONE HYDROCHLORIDE
     Dosage: 16 MILLIGRAM, QD (2 FILMS OF 8 MG)
     Route: 060
     Dates: start: 20130927
  4. SUBOXONE [Suspect]
     Active Substance: BUPRENORPHINE HYDROCHLORIDE\NALOXONE HYDROCHLORIDE
     Dosage: 20 MILLIGRAM, UNKNOWN
     Route: 065
  5. SUBOXONE [Suspect]
     Active Substance: BUPRENORPHINE HYDROCHLORIDE\NALOXONE HYDROCHLORIDE
     Dosage: 8 MILLIGRAM, BID
     Route: 065
  6. SUBUTEX [Suspect]
     Active Substance: BUPRENORPHINE HYDROCHLORIDE
     Indication: Drug use disorder
     Dosage: 8 MILLIGRAM, BID
     Route: 065
  7. BUPRENORPHINE\NALOXONE [Suspect]
     Active Substance: BUPRENORPHINE\NALOXONE
     Indication: Drug use disorder
     Dosage: 8 MILLIGRAM, BID
     Route: 060
     Dates: start: 20230705
  8. FENTANYL [Suspect]
     Active Substance: FENTANYL
     Indication: Product used for unknown indication
     Dosage: UNK
     Route: 065
  9. OXYCODONE [Suspect]
     Active Substance: OXYCODONE
     Indication: Product used for unknown indication
     Dosage: 80 MILLIGRAM, QD
     Route: 048

REACTIONS (20)
  - Overdose [Unknown]
  - Drug dependence [Unknown]
  - Post-traumatic stress disorder [Recovering/Resolving]
  - Periodontal disease [Unknown]
  - Bipolar disorder [Unknown]
  - Tooth loss [Unknown]
  - Dental caries [Not Recovered/Not Resolved]
  - Tooth erosion [Not Recovered/Not Resolved]
  - Tooth fracture [Unknown]
  - Inappropriate schedule of product administration [Unknown]
  - Tongue discomfort [Unknown]
  - Anxiety [Recovering/Resolving]
  - Drug dependence [Unknown]
  - Depression [Recovering/Resolving]
  - Drug withdrawal syndrome [Unknown]
  - Drug abuse [Unknown]
  - Wrong technique in product usage process [Unknown]
  - Intentional product misuse [Unknown]
  - Gingival pain [Unknown]
  - Toothache [Unknown]

NARRATIVE: CASE EVENT DATE: 20130101
